FAERS Safety Report 8504695-2 (Version None)
Quarter: 2012Q3

REPORT INFORMATION
  Report Type: 
  Country: None (occurrence: None)
  Receive Date: 20120711
  Receipt Date: 20120706
  Transmission Date: 20120928
  Serious: Yes (Death, Hospitalization)
  Sender: FDA-Public Use
  Company Number: GB-ROCHE-1084898

PATIENT
  Sex: Female
  Weight: 75 kg

DRUGS (8)
  1. CISPLATIN [Suspect]
     Indication: GASTRIC CANCER
     Dosage: DATE OF LAST DOSE PRIOR TO SAE: 21/JUN/2012
     Route: 042
     Dates: start: 20120510
  2. RANITIDINE [Concomitant]
     Route: 048
     Dates: end: 20120701
  3. MILK THISTLE [Concomitant]
     Route: 048
     Dates: end: 20120701
  4. AVASTIN [Suspect]
     Indication: GASTRIC CANCER
     Dosage: DATE OF LAST DOSE PRIOR TO SAE: 21/JUN/2012
     Route: 042
     Dates: start: 20120510
  5. COD LIVER OIL [Concomitant]
     Route: 048
     Dates: end: 20120701
  6. EPIRUBICIN HYDROCHLORIDE [Suspect]
     Indication: GASTRIC CANCER
     Dosage: DATE OF LAST DOSE PRIOR TO SAE: 21/JUN/2012
     Route: 042
     Dates: start: 20120510
  7. CHONDROITIN + GLUCOSAMINE [Concomitant]
     Route: 048
     Dates: end: 20120701
  8. XELODA [Suspect]
     Indication: GASTRIC CANCER
     Dosage: DATE OF LAST DOSE PRIOR TO SAE: 28/JUN/2012
     Route: 048
     Dates: start: 20120510

REACTIONS (2)
  - NEUTROPENIA [None]
  - DEHYDRATION [None]
